FAERS Safety Report 15659275 (Version 2)
Quarter: 2019Q1

REPORT INFORMATION
  Report Type: Report from Study
  Country: US (occurrence: US)
  Receive Date: 20181127
  Receipt Date: 20190325
  Transmission Date: 20190417
  Serious: No
  Sender: FDA-Public Use
  Company Number: US-AMGEN INC.-USASP2018169248

PATIENT
  Age: 74 Year
  Sex: Male

DRUGS (1)
  1. AIMOVIG [Suspect]
     Active Substance: ERENUMAB-AOOE
     Indication: PRODUCT USED FOR UNKNOWN INDICATION
     Dosage: 140 MG, UNK
     Route: 065
     Dates: start: 20181120

REACTIONS (2)
  - Sleep disorder due to a general medical condition [Unknown]
  - Headache [Not Recovered/Not Resolved]

NARRATIVE: CASE EVENT DATE: 20181120
